FAERS Safety Report 20891783 (Version 3)
Quarter: 2022Q4

REPORT INFORMATION
  Report Type: Report from Study
  Country: CA (occurrence: CA)
  Receive Date: 20220530
  Receipt Date: 20221125
  Transmission Date: 20230112
  Serious: Yes (Other)
  Sender: FDA-Public Use
  Company Number: CA-JNJFOC-20220351830

PATIENT
  Age: 17 Year
  Sex: Female
  Weight: 60 kg

DRUGS (3)
  1. REMICADE [Suspect]
     Active Substance: INFLIXIMAB
     Indication: Colitis ulcerative
     Dosage: LAST REMICADE INFUSION INFUSED TO PATIENT ON 16-MAR-2022. EXPIRY DATE: OCT-2024. ?ON 27-APR-2022, PA
     Route: 042
     Dates: start: 20171106, end: 20221121
  2. REMICADE [Suspect]
     Active Substance: INFLIXIMAB
     Route: 042
  3. REMICADE [Suspect]
     Active Substance: INFLIXIMAB
     Dosage: DISCONTINUATION OF REMICADE.
     Route: 042

REACTIONS (3)
  - Colitis ulcerative [Not Recovered/Not Resolved]
  - Acne [Recovering/Resolving]
  - Off label use [Unknown]

NARRATIVE: CASE EVENT DATE: 20171106
